FAERS Safety Report 15365494 (Version 1)
Quarter: 2018Q3

REPORT INFORMATION
  Report Type: Spontaneous
  Country: EE (occurrence: EE)
  Receive Date: 20180910
  Receipt Date: 20180910
  Transmission Date: 20181010
  Serious: Yes (Other)
  Sender: FDA-Public Use
  Company Number: EE-TEVA-2018-EE-952742

PATIENT
  Age: 2 Year

DRUGS (1)
  1. CORINFAR [Suspect]
     Active Substance: NIFEDIPINE
     Route: 065

REACTIONS (6)
  - Hyperglycaemia [Recovering/Resolving]
  - Tachycardia [Recovering/Resolving]
  - Asthenia [Recovering/Resolving]
  - Accidental exposure to product by child [Unknown]
  - Blood pressure decreased [Recovering/Resolving]
  - Erythema [Recovering/Resolving]

NARRATIVE: CASE EVENT DATE: 20180905
